FAERS Safety Report 10020826 (Version 1)
Quarter: 2014Q1

REPORT INFORMATION
  Report Type: Spontaneous
  Country: SE (occurrence: SE)
  Receive Date: 20140319
  Receipt Date: 20140319
  Transmission Date: 20141002
  Serious: Yes (Life-Threatening, Hospitalization)
  Sender: FDA-Public Use
  Company Number: SE-ASTRAZENECA-2014SE18522

PATIENT
  Age: 82 Year
  Sex: Male

DRUGS (4)
  1. NEXIUM HP [Suspect]
     Route: 048
  2. AMOXICILLIN [Suspect]
     Route: 048
  3. CLARITHROMYCIN [Suspect]
     Route: 065
  4. TROMBYL [Suspect]
     Route: 065

REACTIONS (2)
  - Clostridium difficile infection [Not Recovered/Not Resolved]
  - Gastric haemorrhage [Not Recovered/Not Resolved]
